FAERS Safety Report 8282892-1 (Version None)
Quarter: 2012Q2

REPORT INFORMATION
  Report Type: 
  Country: None (occurrence: None)
  Receive Date: 20120410
  Receipt Date: 20120405
  Transmission Date: 20120825
  Serious: Yes (Other)
  Sender: FDA-Public Use
  Company Number: GER/UKI/12/0023529

PATIENT
  Age: 47 Year
  Sex: Male
  Weight: 119 kg

DRUGS (5)
  1. CLOPIDOGREL BISULFATE [Suspect]
     Indication: PRODUCT USED FOR UNKNOWN INDICATION
  2. SIMVASTATIN [Concomitant]
  3. TRAMADOL HCL [Concomitant]
  4. OMEPRAZOLE [Concomitant]
  5. ALBUTEROL SULFATE [Concomitant]

REACTIONS (4)
  - COUGH [None]
  - DYSPNOEA [None]
  - DYSPEPSIA [None]
  - WHEEZING [None]
